FAERS Safety Report 5232421-1 (Version None)
Quarter: 2007Q1

REPORT INFORMATION
  Report Type: 
  Country: None (occurrence: None)
  Receive Date: 20070205
  Receipt Date: 20070104
  Transmission Date: 20070707
  Serious: Yes (Disabling)
  Sender: FDA-Public Use
  Company Number: 8020467

PATIENT
  Age: 6 Year
  Sex: Male
  Weight: 28 kg

DRUGS (4)
  1. KEPPRA [Suspect]
     Indication: CONVULSION
     Dosage: 600 MG 2/D
     Dates: start: 20060401
  2. KEPPRA [Suspect]
     Indication: CONVULSION
     Dates: start: 20061101
  3. EPILIN [Concomitant]
  4. ETHOSUXEMIDE [Concomitant]

REACTIONS (4)
  - DISTURBANCE IN ATTENTION [None]
  - ILL-DEFINED DISORDER [None]
  - SOMNOLENCE [None]
  - UNRESPONSIVE TO STIMULI [None]
